FAERS Safety Report 4302966-7 (Version None)
Quarter: 2004Q1

REPORT INFORMATION
  Report Type: 
  Country: None (occurrence: None)
  Receive Date: 20040220
  Receipt Date: 20031017
  Transmission Date: 20041129
  Serious: Yes (Disabling)
  Sender: FDA-Public Use
  Company Number: A03200302467

PATIENT
  Age: 70 Year
  Sex: Male

DRUGS (2)
  1. LEUPROLIDE ACETATE [Suspect]
     Indication: PROSTATE CANCER
     Dosage: 7.5 MG ONCE - SUBCUTANEOUS
     Route: 058
     Dates: start: 20040707, end: 20040707
  2. LEUPROLIDE ACETATE [Suspect]
     Indication: PROSTATE CANCER
     Dosage: 30 MG ONCE - SUBCUTANEOUS
     Route: 058
     Dates: start: 20030808, end: 20030808

REACTIONS (8)
  - ABASIA [None]
  - ASTHENIA [None]
  - BUTTOCK PAIN [None]
  - HOT FLUSH [None]
  - MYALGIA [None]
  - NIGHT SWEATS [None]
  - PAIN IN EXTREMITY [None]
  - WHEELCHAIR USER [None]
